FAERS Safety Report 18250366 (Version 1)
Quarter: 2020Q3

REPORT INFORMATION
  Report Type: Spontaneous
  Country: GB (occurrence: GB)
  Receive Date: 20200909
  Receipt Date: 20200909
  Transmission Date: 20201103
  Serious: Yes (Other)
  Sender: FDA-Public Use
  Company Number: GB-TEVA-2020-GB-1824400

PATIENT
  Age: 82 Year
  Sex: Male

DRUGS (1)
  1. ACETAZOLAMIDE. [Suspect]
     Active Substance: ACETAZOLAMIDE
     Indication: GLAUCOMA
     Dosage: 500 MILLIGRAM
     Route: 048
     Dates: start: 20200722, end: 20200729

REACTIONS (5)
  - Genital abscess [Unknown]
  - Erythema [Unknown]
  - Furuncle [Unknown]
  - Erythema multiforme [Recovering/Resolving]
  - Pruritus [Unknown]

NARRATIVE: CASE EVENT DATE: 20200729
